FAERS Safety Report 11696332 (Version 1)
Quarter: 2015Q4

REPORT INFORMATION
  Report Type: Spontaneous
  Country: US (occurrence: US)
  Receive Date: 20151104
  Receipt Date: 20151104
  Transmission Date: 20160304
  Serious: Yes (Life-Threatening)
  Sender: FDA-Public Use
  Company Number: US-MYLANLABS-2015M1037436

PATIENT

DRUGS (1)
  1. WARFARIN [Suspect]
     Active Substance: WARFARIN
     Indication: CEREBRAL VENOUS THROMBOSIS
     Route: 065

REACTIONS (2)
  - Intracranial hypotension [Recovering/Resolving]
  - Subdural haematoma [Recovering/Resolving]
